FAERS Safety Report 4368689-3 (Version None)
Quarter: 2004Q2

REPORT INFORMATION
  Report Type: 
  Country: None (occurrence: None)
  Receive Date: 20040601
  Receipt Date: 20040601
  Transmission Date: 20050107
  Serious: No
  Sender: FDA-Public Use
  Company Number: None

PATIENT
  Sex: Female

DRUGS (6)
  1. VENTOLIN [Suspect]
     Indication: ASTHMA
     Dosage: ONCE OR TWICE A DAY WHEN NEEDED
  2. VENTOLIN [Suspect]
     Indication: EMPHYSEMA
     Dosage: ONCE OR TWICE A DAY WHEN NEEDED
  3. VENTOLIN [Suspect]
     Indication: MULTIPLE ALLERGIES
     Dosage: ONCE OR TWICE A DAY WHEN NEEDED
  4. VENTOLIN HFA [Suspect]
     Indication: ASTHMA
     Dosage: ONCE OR TWICE A DAY WHEN NEEDED FOR DIFFICULT BREATHING AT TIMES
  5. VENTOLIN HFA [Suspect]
     Indication: EMPHYSEMA
     Dosage: ONCE OR TWICE A DAY WHEN NEEDED FOR DIFFICULT BREATHING AT TIMES
  6. VENTOLIN HFA [Suspect]
     Indication: MULTIPLE ALLERGIES
     Dosage: ONCE OR TWICE A DAY WHEN NEEDED FOR DIFFICULT BREATHING AT TIMES

REACTIONS (3)
  - COUGH [None]
  - INFLAMMATION [None]
  - PHARMACEUTICAL PRODUCT COMPLAINT [None]
